FAERS Safety Report 4393564-8 (Version None)
Quarter: 2004Q3

REPORT INFORMATION
  Report Type: 
  Country: None (occurrence: None)
  Receive Date: 20040701
  Receipt Date: 20040618
  Transmission Date: 20050211
  Serious: Yes (Disabling)
  Sender: FDA-Public Use
  Company Number: CH-JNJFOC-20040604692

PATIENT
  Age: 54 Year
  Sex: Male

DRUGS (1)
  1. TOPAMAX [Suspect]
     Dosage: 100 MG, 2 IN 1 DAY,ORAL
     Route: 048
     Dates: start: 20021201

REACTIONS (2)
  - ARTHROPATHY [None]
  - PERIARTHRITIS [None]
